FAERS Safety Report 6730719-9 (Version None)
Quarter: 2010Q2

REPORT INFORMATION
  Report Type: 
  Country: None (occurrence: None)
  Receive Date: 20100518
  Receipt Date: 20100511
  Transmission Date: 20101027
  Serious: Yes (Hospitalization)
  Sender: FDA-Public Use
  Company Number: JP-BAYER-200913250BYL

PATIENT
  Age: 77 Year
  Sex: Male
  Weight: 72 kg

DRUGS (8)
  1. NEXAVAR [Suspect]
     Indication: HEPATIC NEOPLASM MALIGNANT
     Dosage: TOTAL DAILY DOSE: 800 MG  UNIT DOSE: 200 MG
     Route: 048
     Dates: start: 20090828, end: 20090910
  2. LIVACT [Concomitant]
     Indication: HEPATIC CIRRHOSIS
     Dosage: UNIT DOSE: 4.15 G
     Route: 048
  3. MELBIN [Concomitant]
     Indication: DIABETES MELLITUS
     Dosage: UNIT DOSE: 250 MG
     Route: 048
  4. LASIX [Concomitant]
     Indication: HEPATIC CIRRHOSIS
     Dosage: UNIT DOSE: 40 MG
     Route: 048
  5. ADALAT [Concomitant]
     Indication: HYPERTENSION
     Dosage: UNIT DOSE: 20 MG
     Route: 048
  6. URSO 250 [Concomitant]
     Indication: HEPATIC CIRRHOSIS
     Dosage: UNIT DOSE: 100 MG
     Route: 048
  7. CANDESARTAN CILEXETIL [Concomitant]
     Indication: HYPERTENSION
     Dosage: UNIT DOSE: 4 MG
     Route: 048
  8. EUGLUCON [Concomitant]
     Indication: DIABETES MELLITUS
     Dosage: UNIT DOSE: 2.5 MG
     Route: 048

REACTIONS (3)
  - ASCITES [None]
  - HEPATIC ENCEPHALOPATHY [None]
  - PYREXIA [None]
